FAERS Safety Report 20637958 (Version 1)
Quarter: 2022Q1

REPORT INFORMATION
  Report Type: Spontaneous
  Country: DE (occurrence: None)
  Receive Date: 20220325
  Receipt Date: 20220325
  Transmission Date: 20220423
  Serious: Yes (Other)
  Sender: FDA-Public Use
  Company Number: 2022A122422

PATIENT
  Age: 76 Year
  Sex: Male

DRUGS (6)
  1. DAPAGLIFLOZIN [Suspect]
     Active Substance: DAPAGLIFLOZIN
     Indication: Cardiac failure
     Route: 048
  2. TORSEMIDE [Concomitant]
     Active Substance: TORSEMIDE
     Dosage: 10 1X1
  3. SACUBITRIL\VALSARTAN [Concomitant]
     Active Substance: SACUBITRIL\VALSARTAN
     Dosage: 24/26 2X1
  4. BISOPROLOL [Concomitant]
     Active Substance: BISOPROLOL
     Dosage: 2.5 1X1
  5. EPLERENONE [Concomitant]
     Active Substance: EPLERENONE
     Dosage: 25 1X1
  6. EDOXABAN [Concomitant]
     Active Substance: EDOXABAN
     Dosage: 60 1X1

REACTIONS (2)
  - Amyloidosis [Unknown]
  - Left ventricular hypertrophy [Unknown]
